FAERS Safety Report 8595348-3 (Version None)
Quarter: 2012Q3

REPORT INFORMATION
  Report Type: 
  Country: None (occurrence: None)
  Receive Date: 20120815
  Receipt Date: 20120807
  Transmission Date: 20120928
  Serious: Yes (Life-Threatening)
  Sender: FDA-Public Use
  Company Number: SA-ROXANE LABORATORIES, INC.-2012-RO-01647RO

PATIENT
  Age: 33 Year
  Sex: Female

DRUGS (1)
  1. LEVETIRACETAM [Suspect]
     Indication: PARTIAL SEIZURES
     Dosage: 500 MG

REACTIONS (1)
  - ANGIOEDEMA [None]
